FAERS Safety Report 6511163-6 (Version None)
Quarter: 2009Q4

REPORT INFORMATION
  Report Type: 
  Country: None (occurrence: None)
  Receive Date: 20091222
  Receipt Date: 20091216
  Transmission Date: 20100525
  Serious: Yes (Life-Threatening)
  Sender: FDA-Public Use
  Company Number: GB-ELI_LILLY_AND_COMPANY-GB200911002368

PATIENT
  Sex: Male
  Weight: 81 kg

DRUGS (10)
  1. SOMATROPIN [Suspect]
     Indication: GROWTH HORMONE DEFICIENCY
     Dosage: 0.2 MG, DAILY (1/D)
     Route: 058
     Dates: start: 20000712
  2. HYDROCORTISONE [Concomitant]
     Indication: ADRENAL INSUFFICIENCY
     Dates: start: 19970101
  3. LEVOTHYROXINE SODIUM [Concomitant]
     Indication: HYPOTHYROIDISM
     Dates: start: 19970101
  4. SUSTANON /00418401/ [Concomitant]
     Indication: HYPOGONADISM
     Dates: start: 19970101
  5. CABERGOLINE [Concomitant]
     Indication: HYPERPROLACTINAEMIA
     Dates: start: 19980101
  6. MIXTARD /00634701/ [Concomitant]
     Indication: TYPE 2 DIABETES MELLITUS
     Dates: start: 19990101
  7. PRAVASTATIN [Concomitant]
     Indication: HYPERLIPIDAEMIA
     Dates: start: 20000101
  8. ASPIRIN [Concomitant]
     Indication: PROPHYLAXIS
     Dates: start: 20010101
  9. CO-CODAMOL [Concomitant]
     Dates: start: 20040101
  10. NITROGLYCERIN [Concomitant]
     Indication: ANGINA PECTORIS
     Dates: start: 20070101

REACTIONS (1)
  - MYOCARDIAL INFARCTION [None]
